FAERS Safety Report 7669416-4 (Version None)
Quarter: 2011Q3

REPORT INFORMATION
  Report Type: 
  Country: None (occurrence: None)
  Receive Date: 20110808
  Receipt Date: 20110801
  Transmission Date: 20111222
  Serious: Yes (Death, Other)
  Sender: FDA-Public Use
  Company Number: US-ROCHE-794628

PATIENT

DRUGS (9)
  1. CIMETIDINE [Concomitant]
     Route: 042
  2. GANCICLOVIR [Suspect]
     Route: 065
  3. ACETAMINOPHEN [Concomitant]
     Route: 048
  4. FAMCICLOVIR [Concomitant]
  5. VALGANCICLOVIR [Suspect]
     Route: 065
  6. DIPHENHYDRAMINE HCL [Concomitant]
     Route: 042
  7. HYDROCORTISONE [Concomitant]
     Route: 042
  8. ALEMTUZUMAB [Suspect]
     Indication: LYMPHOPLASMACYTOID LYMPHOMA/IMMUNOCYTOMA
     Route: 042
  9. SULFAMETHOXAZOLE AND TRIMETHOPRIM [Concomitant]

REACTIONS (6)
  - PANCYTOPENIA [None]
  - ACUTE RESPIRATORY DISTRESS SYNDROME [None]
  - EMBOLIC STROKE [None]
  - ENDOCARDITIS STAPHYLOCOCCAL [None]
  - PNEUMONIA [None]
  - NEUTROPENIA [None]
